FAERS Safety Report 4831079-0 (Version None)
Quarter: 2005Q4

REPORT INFORMATION
  Report Type: 
  Country: None (occurrence: None)
  Receive Date: 20051116
  Receipt Date: 20051116
  Transmission Date: 20060501
  Serious: No
  Sender: FDA-Public Use
  Company Number: None

PATIENT
  Age: 59 Year
  Sex: Female
  Weight: 83.5 kg

DRUGS (2)
  1. PAN-VAC-V PLUS DENDRITCI CELLS [Suspect]
     Indication: COLON CANCER
     Dosage: 2X10E8 PFU= 1 ML SQ
     Route: 058
     Dates: start: 20050921
  2. PAN-VAC-F PLUS DENDRITCI CELLS [Suspect]
     Indication: COLON CANCER
     Dosage: 1X10 9 PFU = 1.0 ML SQ
     Route: 058
     Dates: start: 20051012

REACTIONS (2)
  - SWELLING FACE [None]
  - URTICARIA [None]
